FAERS Safety Report 16863723 (Version 1)
Quarter: 2019Q3

REPORT INFORMATION
  Report Type: Spontaneous
  Country: GB (occurrence: GB)
  Receive Date: 20190927
  Receipt Date: 20190927
  Transmission Date: 20191005
  Serious: Yes (Life-Threatening, Other)
  Sender: FDA-Public Use
  Company Number: GB-PFIZER INC-2019416250

PATIENT
  Age: 47 Year
  Sex: Female
  Weight: 49 kg

DRUGS (11)
  1. FEMOSTON [Concomitant]
     Active Substance: DYDROGESTERONE\ESTRADIOL
     Dosage: 0.1 MG, 1X/DAY
     Dates: start: 20190724
  2. OMEPRAZOLE. [Concomitant]
     Active Substance: OMEPRAZOLE
     Dosage: UNK ON ADMISSION
     Route: 042
     Dates: start: 201908
  3. THIAMINE. [Concomitant]
     Active Substance: THIAMINE
     Dosage: 300 MG, 1X/DAY
     Dates: start: 20190828
  4. QVAR [Concomitant]
     Active Substance: BECLOMETHASONE DIPROPIONATE
     Dosage: 4 DF, 1X/DAY, PUFFS
  5. SERTRALINE HCL [Suspect]
     Active Substance: SERTRALINE HYDROCHLORIDE
     Dosage: 50 MG, 1X/DAY
     Dates: start: 20190805
  6. CLARITHROMYCIN. [Suspect]
     Active Substance: CLARITHROMYCIN
     Indication: HELICOBACTER INFECTION
     Dosage: 1000 MG, 1X/DAY
     Route: 048
     Dates: start: 20190828, end: 20190829
  7. AMOXICILLIN. [Concomitant]
     Active Substance: AMOXICILLIN
     Dosage: 2 G, 1X/DAY
     Dates: start: 20190828
  8. LANSOPRAZOLE. [Concomitant]
     Active Substance: LANSOPRAZOLE
     Dosage: 60 MG, 1X/DAY
     Dates: start: 20190828
  9. CHLORDIAZEPOXIDE. [Concomitant]
     Active Substance: CHLORDIAZEPOXIDE
     Dosage: 1 DF, AS NEEDED PER ALCOHOL WITHDRAWAL REGIME (CIWA SCALE)
  10. SALBUTAMOL [Concomitant]
     Active Substance: ALBUTEROL
     Dosage: 2 DF AS NEEDED 100MCG/PUFF. PUFFS (RARELY USES). EVOHALER
  11. OMEPRAZOLE. [Concomitant]
     Active Substance: OMEPRAZOLE
     Dosage: 80 MG, 1X/DAY
     Route: 048
     Dates: start: 20190828

REACTIONS (3)
  - Cardiac arrest [Recovered/Resolved]
  - Circulatory collapse [Recovered/Resolved]
  - Hypomagnesaemia [Unknown]

NARRATIVE: CASE EVENT DATE: 2019
